FAERS Safety Report 24376661 (Version 1)
Quarter: 2024Q3

REPORT INFORMATION
  Report Type: Spontaneous
  Country: US (occurrence: None)
  Receive Date: 20240926
  Receipt Date: 20240926
  Transmission Date: 20241017
  Serious: Yes (Hospitalization)
  Sender: Public
  Company Number: None

PATIENT
  Age: 73 Year
  Sex: Male
  Weight: 69 kg

DRUGS (2)
  1. WARFARIN SODIUM [Suspect]
     Active Substance: WARFARIN SODIUM
     Indication: Cardiac ventricular thrombosis
  2. ASPIRIN [Suspect]
     Active Substance: ASPIRIN
     Dosage: FREQUENCY : DAILY;?
     Route: 048

REACTIONS (6)
  - Haemoglobin decreased [None]
  - Gastrointestinal haemorrhage [None]
  - Shock [None]
  - Therapy cessation [None]
  - Oesophagitis [None]
  - Oesophageal stenosis [None]

NARRATIVE: CASE EVENT DATE: 20230714
